FAERS Safety Report 6436816-X (Version None)
Quarter: 2009Q4

REPORT INFORMATION
  Report Type: 
  Country: None (occurrence: None)
  Receive Date: 20091111
  Receipt Date: 20091104
  Transmission Date: 20100525
  Serious: Yes (Hospitalization)
  Sender: FDA-Public Use
  Company Number: FR-MERCK-0911FRA00024

PATIENT
  Age: 72 Year
  Sex: Female

DRUGS (10)
  1. JANUVIA [Suspect]
     Indication: TYPE 2 DIABETES MELLITUS
     Route: 048
     Dates: start: 20090601, end: 20090830
  2. NIAOULI OIL AND QUININE BENZOATE AND THIAMINE HYDROCHLORIDE [Suspect]
     Route: 048
     Dates: start: 20090710
  3. HYDROCHLOROTHIAZIDE AND IRBESARTAN [Concomitant]
     Route: 048
     Dates: end: 20090830
  4. ASPIRIN LYSINE [Concomitant]
     Route: 065
  5. ACETAMINOPHEN [Concomitant]
     Route: 065
  6. METFORMIN HYDROCHLORIDE [Concomitant]
     Route: 065
  7. ESOMEPRAZOLE MAGNESIUM [Concomitant]
     Route: 065
  8. ACEBUTOLOL HYDROCHLORIDE [Concomitant]
     Route: 065
  9. ZOLPIDEM TARTRATE [Concomitant]
     Route: 065
  10. ATORVASTATIN CALCIUM [Concomitant]
     Route: 065

REACTIONS (1)
  - HYPONATRAEMIA [None]
